FAERS Safety Report 22246574 (Version 2)
Quarter: 2023Q2

REPORT INFORMATION
  Report Type: Spontaneous
  Country: US (occurrence: US)
  Receive Date: 20230424
  Receipt Date: 20230629
  Transmission Date: 20230721
  Serious: Yes (Other)
  Sender: FDA-Public Use
  Company Number: US-BAYER-2023A049313

PATIENT
  Age: 77 Year
  Sex: Male

DRUGS (3)
  1. NUBEQA [Suspect]
     Active Substance: DAROLUTAMIDE
     Indication: Prostate cancer
     Dosage: UNK
     Dates: start: 2021
  2. LUPRON [Concomitant]
     Active Substance: LEUPROLIDE ACETATE
  3. CASODEX [Concomitant]
     Active Substance: BICALUTAMIDE

REACTIONS (8)
  - Tendon sheath incision [None]
  - Peripheral swelling [Recovered/Resolved]
  - Pain in extremity [Recovered/Resolved]
  - Musculoskeletal disorder [Recovered/Resolved]
  - Peripheral swelling [None]
  - Pain in extremity [None]
  - Musculoskeletal disorder [None]
  - Drug ineffective [None]

NARRATIVE: CASE EVENT DATE: 20220101
